FAERS Safety Report 8382381-X (Version None)
Quarter: 2012Q2

REPORT INFORMATION
  Report Type: 
  Country: None (occurrence: None)
  Receive Date: 20120524
  Receipt Date: 20120511
  Transmission Date: 20120825
  Serious: Yes (Life-Threatening, Hospitalization)
  Sender: FDA-Public Use
  Company Number: ES-JNJFOC-20120513868

PATIENT
  Age: 73 Year
  Sex: Female

DRUGS (6)
  1. LESCOL [Interacting]
     Indication: DYSLIPIDAEMIA
     Route: 048
     Dates: start: 20110309, end: 20111213
  2. DEPAKENE [Interacting]
     Indication: OSTEOARTHRITIS
     Route: 048
     Dates: start: 20110308, end: 20111213
  3. ESCITALOPRAM OXALATE [Interacting]
     Indication: BIPOLAR DISORDER
     Route: 048
     Dates: start: 20111107, end: 20111213
  4. TRAMADOL HYDROCHLORIDE [Interacting]
     Indication: OSTEOARTHRITIS
     Route: 048
     Dates: start: 20111207, end: 20111213
  5. PANTOPRAZOLE [Interacting]
     Indication: PROPHYLAXIS
     Route: 048
     Dates: start: 20110711, end: 20111213
  6. TRAMADOL HYDROCHLORIDE AND ACETAMINOPHEN [Suspect]
     Indication: OSTEOARTHRITIS
     Route: 048
     Dates: start: 20110701, end: 20111213

REACTIONS (3)
  - RHABDOMYOLYSIS [None]
  - DRUG INTERACTION [None]
  - HYPERCREATININAEMIA [None]
